FAERS Safety Report 9008080 (Version 3)
Quarter: 2013Q1

REPORT INFORMATION
  Report Type: Spontaneous
  Country: US (occurrence: US)
  Receive Date: 20130111
  Receipt Date: 20130215
  Transmission Date: 20140127
  Serious: Yes (Other)
  Sender: FDA-Public Use
  Company Number: US-PFIZER INC-2013007182

PATIENT
  Age: 77 Year
  Sex: Female
  Weight: 81.63 kg

DRUGS (6)
  1. DETROL LA [Suspect]
     Indication: HYPERTONIC BLADDER
     Dosage: UNK, DAILY
     Dates: start: 2012, end: 2012
  2. TOVIAZ [Suspect]
     Indication: HYPERTONIC BLADDER
     Dosage: 4 MG, DAILY
     Route: 048
     Dates: start: 2012
  3. TOVIAZ [Suspect]
     Indication: URGE INCONTINENCE
     Dosage: 2 MG, 1X/DAY (HALF A 4 MG TABLET DAILY)
     Dates: start: 20130101
  4. AMLODIPINE BESILATE [Concomitant]
     Dosage: 10 MG, DAILY
  5. HYDROCHLOROTHIAZIDE [Concomitant]
     Dosage: 12.5 MG, DAILY
  6. METOPROLOL TARTRATE [Concomitant]
     Dosage: UNK MG, 2X/DAY

REACTIONS (7)
  - Dysphagia [Unknown]
  - Swelling [Recovered/Resolved]
  - Dry mouth [Recovered/Resolved]
  - Dry throat [Recovered/Resolved]
  - Speech disorder [Recovered/Resolved]
  - Pain [Recovered/Resolved]
  - Drug administration error [Unknown]
